FAERS Safety Report 6252876-3 (Version None)
Quarter: 2009Q3

REPORT INFORMATION
  Report Type: 
  Country: None (occurrence: None)
  Receive Date: 20090701
  Receipt Date: 20090616
  Transmission Date: 20100115
  Serious: Yes (Hospitalization)
  Sender: FDA-Public Use
  Company Number: PT-TEVA-200164ISR

PATIENT
  Age: 14 Year
  Sex: Female

DRUGS (3)
  1. BUDESONIDE [Suspect]
     Route: 055
  2. MONTELUKAST [Suspect]
  3. CORTICOSTEROID NOS [Suspect]

REACTIONS (2)
  - ALLERGIC GRANULOMATOUS ANGIITIS [None]
  - ASTHMA [None]
